FAERS Safety Report 5870669-3 (Version None)
Quarter: 2008Q3

REPORT INFORMATION
  Report Type: 
  Country: None (occurrence: None)
  Receive Date: 20080904
  Receipt Date: 20080904
  Transmission Date: 20090109
  Serious: Yes (Hospitalization)
  Sender: FDA-Public Use
  Company Number: PHEH1996US08007

PATIENT
  Sex: Female
  Weight: 86 kg

DRUGS (8)
  1. SANDIMMUNE [Suspect]
     Route: 048
     Dates: start: 19951011
  2. PREDNISONE [Concomitant]
     Dosage: UNSPECIFIED
     Route: 065
  3. TMP SULFA (TRIMETHOPRIM) [Concomitant]
  4. ACYCLOVIR [Concomitant]
  5. NIFEDEPINE (NIFEDIPINE) [Concomitant]
  6. CLOTRIMAZOLE [Concomitant]
  7. NIZATIDINE [Concomitant]
  8. AMOXICILLIN [Concomitant]

REACTIONS (2)
  - BLOOD CREATININE INCREASED [None]
  - DRUG LEVEL INCREASED [None]
